FAERS Safety Report 15305135 (Version 1)
Quarter: 2018Q3

REPORT INFORMATION
  Report Type: Spontaneous
  Country: JP (occurrence: JP)
  Receive Date: 20180822
  Receipt Date: 20180822
  Transmission Date: 20181010
  Serious: Yes (Hospitalization, Other)
  Sender: FDA-Public Use
  Company Number: JP-009507513-1705JPN001858J

PATIENT
  Age: 70 Year
  Sex: Male
  Weight: 53 kg

DRUGS (1)
  1. KEYTRUDA [Suspect]
     Active Substance: PEMBROLIZUMAB
     Indication: LUNG ADENOCARCINOMA
     Dosage: 200 MG, Q3W
     Route: 041
     Dates: start: 20170518, end: 20170728

REACTIONS (7)
  - Cardiac failure [Recovered/Resolved]
  - Infusion site swelling [Recovered/Resolved]
  - Hepatic enzyme increased [Recovered/Resolved]
  - C-reactive protein increased [Recovered/Resolved]
  - Skin disorder [Recovering/Resolving]
  - Dysgeusia [Recovered/Resolved]
  - Pyrexia [Recovered/Resolved]

NARRATIVE: CASE EVENT DATE: 20170518
